FAERS Safety Report 6680714-3 (Version None)
Quarter: 2010Q2

REPORT INFORMATION
  Report Type: 
  Country: None (occurrence: None)
  Receive Date: 20100413
  Receipt Date: 20100413
  Transmission Date: 20101027
  Serious: Yes (Other)
  Sender: FDA-Public Use
  Company Number: None

PATIENT
  Age: 58 Year
  Sex: Male

DRUGS (4)
  1. VORICONAZOLE [Suspect]
     Indication: OESOPHAGEAL CANDIDIASIS
     Dosage: 200 MG PO BID
     Route: 048
     Dates: start: 20090301
  2. EPZICOM [Concomitant]
  3. ATAZANAVAIR [Concomitant]
  4. AEROSOLIZED PENTAMIDINE [Concomitant]

REACTIONS (1)
  - PHOTOSENSITIVITY REACTION [None]
